FAERS Safety Report 25639657 (Version 2)
Quarter: 2025Q4

REPORT INFORMATION
  Report Type: Spontaneous
  Country: US (occurrence: US)
  Receive Date: 20250804
  Receipt Date: 20251009
  Transmission Date: 20260118
  Serious: Yes (Other)
  Sender: SANOFI AVENTIS
  Company Number: US-SANOFI-02595767

PATIENT
  Age: 74 Year
  Sex: Female

DRUGS (12)
  1. DUPIXENT [Suspect]
     Active Substance: DUPILUMAB
     Dosage: 300 MG, QOW
     Route: 058
     Dates: start: 20230413, end: 202501
  2. SARS-CoV-2 vaccine (vero cell), inactivated [Concomitant]
     Indication: Immunisation
     Dosage: UNK
     Dates: start: 20210312, end: 20210312
  3. SARS-CoV-2 vaccine (vero cell), inactivated [Concomitant]
     Dosage: UNK
     Dates: start: 20210408, end: 20210408
  4. SARS-CoV-2 vaccine (vero cell), inactivated [Concomitant]
     Dosage: UNK
     Dates: start: 20211010, end: 20211010
  5. SARS-CoV-2 vaccine (vero cell), inactivated [Concomitant]
     Dosage: UNK
     Dates: start: 20220923, end: 20220923
  6. AZELASTINE HYDROCHLORIDE [Concomitant]
     Active Substance: AZELASTINE HYDROCHLORIDE
     Dosage: 137MCG
     Route: 045
  7. UNSPECIFIED INGREDIENT [Concomitant]
     Active Substance: UNSPECIFIED INGREDIENT
     Indication: Immunisation
     Dates: start: 20231023, end: 20231023
  8. NORTRIPTYLINE [Concomitant]
     Active Substance: NORTRIPTYLINE
     Dosage: 25 MG, QD
     Route: 048
     Dates: start: 2020
  9. LOSARTAN [Concomitant]
     Active Substance: LOSARTAN
     Dosage: 50MG, QD
     Route: 048
     Dates: start: 2022
  10. COLESTIPOL HYDROCHLORIDE [Concomitant]
     Active Substance: COLESTIPOL HYDROCHLORIDE
     Dosage: 1GM, BID
     Route: 048
     Dates: start: 2020
  11. SYNTHROID [Concomitant]
     Active Substance: LEVOTHYROXINE SODIUM
     Dosage: 125MCG, DAILY
     Route: 048
  12. TRELEGY ELLIPTA [Concomitant]
     Active Substance: FLUTICASONE FUROATE\UMECLIDINIUM BROMIDE\VILANTEROL TRIFENATATE
     Dosage: 200MCG, 42.5 MCG, 25MCG, DAILY, QD
     Route: 048
     Dates: start: 2024

REACTIONS (13)
  - Haematochezia [Unknown]
  - Anal fissure haemorrhage [Unknown]
  - Faeces hard [Unknown]
  - Eating disorder [Unknown]
  - Hypokinesia [Unknown]
  - Pain [Unknown]
  - Sleep disorder [Unknown]
  - Migraine [Unknown]
  - Vomiting [Unknown]
  - Dizziness [Unknown]
  - Genital herpes simplex [Unknown]
  - Condition aggravated [Recovered/Resolved]
  - Drug ineffective [Unknown]
